FAERS Safety Report 9798994 (Version 1)
Quarter: 2014Q1

REPORT INFORMATION
  Report Type: Spontaneous
  Country: US (occurrence: US)
  Receive Date: 20140106
  Receipt Date: 20140106
  Transmission Date: 20141002
  Serious: No
  Sender: FDA-Public Use
  Company Number: US-GILEAD-2010-0032304

PATIENT
  Age: 22 Year
  Sex: Female
  Weight: 50.8 kg

DRUGS (17)
  1. LETAIRIS [Suspect]
     Indication: PULMONARY ARTERIAL HYPERTENSION
     Route: 048
     Dates: start: 20100719
  2. LASIX [Concomitant]
  3. ALBUTEROL [Concomitant]
  4. SINGULAIR [Concomitant]
  5. FLOVENT [Concomitant]
  6. ADVAIR [Concomitant]
  7. DIGOXIN [Concomitant]
  8. NAPROXEN [Concomitant]
  9. AMITRIPTYLENE [Concomitant]
  10. TRAZODONE [Concomitant]
  11. PRILOSEC [Concomitant]
  12. HYDROXYUREA [Concomitant]
  13. BENADRYL [Concomitant]
  14. DESFERAL [Concomitant]
  15. OXYCODONE [Concomitant]
  16. SENNA [Concomitant]
  17. PROZAC [Concomitant]

REACTIONS (1)
  - Hepatic enzyme increased [Unknown]
